FAERS Safety Report 20032516 (Version 1)
Quarter: 2021Q4

REPORT INFORMATION
  Report Type: 
  Country: None (occurrence: None)
  Receive Date: 20211103
  Receipt Date: 20211103
  Transmission Date: 20220303
  Serious: No
  Sender: FDA-Public Use
  Company Number: None

PATIENT
  Age: 49 Year
  Sex: Male

DRUGS (1)
  1. DORZOLAMIDE HYDROCHLORIDE OPHTHALMIC SOLUTION [Suspect]
     Active Substance: DORZOLAMIDE HYDROCHLORIDE

REACTIONS (5)
  - Eye irritation [None]
  - Ocular hyperaemia [None]
  - Lacrimation increased [None]
  - Vision blurred [None]
  - Drug hypersensitivity [None]

NARRATIVE: CASE EVENT DATE: 20211025
